FAERS Safety Report 7000242-5 (Version None)
Quarter: 2010Q3

REPORT INFORMATION
  Report Type: 
  Country: None (occurrence: None)
  Receive Date: 20100920
  Receipt Date: 20091116
  Transmission Date: 20110219
  Serious: Yes (Other)
  Sender: FDA-Public Use
  Company Number: US-ASTRAZENECA-2006UW22630

PATIENT
  Age: 10306 Day
  Sex: Female
  Weight: 116 kg

DRUGS (20)
  1. SEROQUEL [Suspect]
     Indication: INSOMNIA
     Dosage: 25-500 MG
     Route: 048
     Dates: start: 20020731
  2. SEROQUEL [Suspect]
     Indication: DEPRESSION
     Dosage: 25-500 MG
     Route: 048
     Dates: start: 20020731
  3. SEROQUEL [Suspect]
     Route: 048
     Dates: start: 20021216
  4. SEROQUEL [Suspect]
     Route: 048
     Dates: start: 20021216
  5. SEROQUEL [Suspect]
     Route: 048
     Dates: start: 20030101, end: 20050101
  6. SEROQUEL [Suspect]
     Route: 048
     Dates: start: 20030101, end: 20050101
  7. HALDOL [Concomitant]
     Route: 048
  8. METHADONE [Concomitant]
     Dates: start: 19971001
  9. PANLOR SS [Concomitant]
     Route: 048
  10. CODEINE [Concomitant]
     Route: 048
  11. SYNTHROID [Concomitant]
     Route: 048
  12. WELLBUTRIN [Concomitant]
     Route: 048
  13. TOPAMAX [Concomitant]
     Dosage: 50-200 MG
     Route: 048
  14. HYDROCHLOROTHIAZIDE [Concomitant]
  15. LUNESTA [Concomitant]
  16. CELEXA [Concomitant]
     Dosage: 20-30 MG
     Route: 048
  17. DOXEPIN HCL [Concomitant]
     Dosage: 10-50 MG
     Route: 048
  18. AMBIEN [Concomitant]
     Route: 048
  19. SONATA [Concomitant]
     Route: 048
  20. LITHIUM CARBONATE [Concomitant]
     Route: 048

REACTIONS (2)
  - HYPERGLYCAEMIA [None]
  - PANCREATITIS ACUTE [None]
